FAERS Safety Report 18276738 (Version 2)
Quarter: 2021Q3

REPORT INFORMATION
  Report Type: Spontaneous
  Country: US (occurrence: US)
  Receive Date: 20200917
  Receipt Date: 20210701
  Transmission Date: 20211014
  Serious: Yes (Other)
  Sender: FDA-Public Use
  Company Number: US-SA-2020SA249321

PATIENT
  Age: 21 Year
  Sex: Male

DRUGS (1)
  1. ZANTAC [Suspect]
     Active Substance: RANITIDINE HYDROCHLORIDE
     Indication: DYSPEPSIA
     Dosage: 150 UNK, QW
     Dates: start: 199206, end: 199906

REACTIONS (4)
  - Testis cancer [Unknown]
  - Gastric cancer [Unknown]
  - Hepatic cancer [Unknown]
  - Back disorder [Unknown]

NARRATIVE: CASE EVENT DATE: 19980922
